FAERS Safety Report 12873673 (Version 1)
Quarter: 2016Q4

REPORT INFORMATION
  Report Type: Spontaneous
  Country: US (occurrence: US)
  Receive Date: 20161021
  Receipt Date: 20161021
  Transmission Date: 20170207
  Serious: Yes (Death, Hospitalization)
  Sender: FDA-Public Use
  Company Number: US-B.I. PHARMACEUTICALS,INC./RIDGEFIELD-2016-BI-069733

PATIENT
  Age: 77 Year
  Sex: Female

DRUGS (1)
  1. COMBIVENT [Suspect]
     Active Substance: ALBUTEROL SULFATE\IPRATROPIUM BROMIDE
     Indication: PULMONARY FIBROSIS
     Dosage: DOSE PER APPLICATION: 20 MCG / 100 MCG, DAILY DOSE: 80 MCG/400 MCG.
     Route: 055
     Dates: start: 2014

REACTIONS (3)
  - Off label use [Unknown]
  - Hernia [Unknown]
  - Dyspnoea [Fatal]

NARRATIVE: CASE EVENT DATE: 2014
